FAERS Safety Report 11456858 (Version 1)
Quarter: 2015Q3

REPORT INFORMATION
  Report Type: Spontaneous
  Country: AT (occurrence: AT)
  Receive Date: 20150904
  Receipt Date: 20150904
  Transmission Date: 20151125
  Serious: Yes (Other)
  Sender: FDA-Public Use
  Company Number: AT-ROCHE-1627547

PATIENT
  Age: 44 Year
  Sex: Male

DRUGS (5)
  1. TOCILIZUMAB [Suspect]
     Active Substance: TOCILIZUMAB
     Route: 042
     Dates: start: 201506
  2. ETANERCEPT [Suspect]
     Active Substance: ETANERCEPT
     Indication: POLYARTHRITIS
     Route: 065
     Dates: start: 2010, end: 20150218
  3. TOCILIZUMAB [Suspect]
     Active Substance: TOCILIZUMAB
     Indication: POLYARTHRITIS
     Route: 042
     Dates: start: 2011, end: 20150218
  4. METHOTREXATE [Suspect]
     Active Substance: METHOTREXATE
     Indication: POLYARTHRITIS
     Route: 065
     Dates: start: 2009, end: 20150218
  5. SULFASALAZINE DELAYED-RELEASE [Suspect]
     Active Substance: SULFASALAZINE
     Indication: POLYARTHRITIS
     Route: 065
     Dates: start: 201505

REACTIONS (7)
  - Sepsis [Unknown]
  - Pulmonary embolism [Recovered/Resolved]
  - Acute prerenal failure [Unknown]
  - Dehydration [Unknown]
  - Polyarthritis [Unknown]
  - Diarrhoea [Unknown]
  - Tooth extraction [Unknown]

NARRATIVE: CASE EVENT DATE: 201111
